FAERS Safety Report 26165888 (Version 1)
Quarter: 2025Q4

REPORT INFORMATION
  Report Type: Spontaneous
  Country: EU (occurrence: EU)
  Receive Date: 20251216
  Receipt Date: 20251216
  Transmission Date: 20260118
  Serious: Yes (Hospitalization, Other)
  Sender: ELI LILLY AND COMPANY
  Company Number: EU-BRISTOL-MYERS SQUIBB COMPANY-2025-164050

PATIENT
  Age: 60 Year
  Sex: Female

DRUGS (6)
  1. PEMETREXED [Suspect]
     Active Substance: PEMETREXED
     Indication: Non-small cell lung cancer metastatic
     Dosage: 500 MG/M2, UNKNOWN
     Route: 065
     Dates: start: 202312
  2. IPILIMUMAB [Suspect]
     Active Substance: IPILIMUMAB
     Indication: Non-small cell lung cancer metastatic
     Dosage: 1 MG/KG, OTHER (EVERY THREE WEEKS)
     Route: 065
     Dates: start: 202312
  3. IPILIMUMAB [Suspect]
     Active Substance: IPILIMUMAB
     Dosage: 1 MG/KG, OTHER (EVERY 6 WEEKS)
     Route: 065
  4. NIVOLUMAB [Suspect]
     Active Substance: NIVOLUMAB
     Indication: Non-small cell lung cancer metastatic
     Dosage: 360 MG, OTHER (EVERY THREE WEEKS)
     Route: 065
     Dates: start: 202312
  5. NIVOLUMAB [Suspect]
     Active Substance: NIVOLUMAB
     Dosage: 360 MG, OTHER (EVERY SIX WEEKS)
     Route: 065
  6. CARBOPLATIN [Suspect]
     Active Substance: CARBOPLATIN
     Indication: Non-small cell lung cancer metastatic
     Dosage: UNK UNK, UNKNOWN
     Route: 065
     Dates: start: 202312

REACTIONS (8)
  - Adrenal insufficiency [Unknown]
  - Hypothyroidism [Unknown]
  - Hepatitis [Recovering/Resolving]
  - Malignant neoplasm oligoprogression [Unknown]
  - Malignant neoplasm progression [Unknown]
  - Colitis [Unknown]
  - Rash [Unknown]
  - Arthralgia [Unknown]

NARRATIVE: CASE EVENT DATE: 20250301
